FAERS Safety Report 9233487 (Version 1)
Quarter: 2013Q2

REPORT INFORMATION
  Report Type: Spontaneous
  Country: GB (occurrence: GB)
  Receive Date: 20130416
  Receipt Date: 20130416
  Transmission Date: 20140414
  Serious: Yes (Hospitalization)
  Sender: FDA-Public Use
  Company Number: GB-PFIZER INC-GBWYE229924NOV04

PATIENT
  Age: 33 Year
  Sex: Female

DRUGS (3)
  1. IBUPROFEN [Suspect]
     Dosage: UNKNOWN
  2. CLOZARIL [Suspect]
     Indication: ACCIDENTAL EXPOSURE TO PRODUCT
     Dosage: UNKNOWN
     Route: 048
     Dates: start: 20030819, end: 20030820
  3. ALCOHOL [Suspect]
     Dosage: UNKNOWN

REACTIONS (4)
  - Intentional overdose [Unknown]
  - White blood cell count increased [Unknown]
  - Blood pressure decreased [Recovered/Resolved]
  - Somnolence [Recovered/Resolved]
